FAERS Safety Report 16133262 (Version 2)
Quarter: 2019Q2

REPORT INFORMATION
  Report Type: Spontaneous
  Country: DE (occurrence: DE)
  Receive Date: 20190329
  Receipt Date: 20190419
  Transmission Date: 20190711
  Serious: Yes (Other)
  Sender: FDA-Public Use
  Company Number: PHHY2019DE069025

PATIENT
  Age: 36 Year
  Sex: Female

DRUGS (1)
  1. INTERFERON BETA-1B [Suspect]
     Active Substance: INTERFERON BETA-1B
     Indication: MULTIPLE SCLEROSIS
     Dosage: 250 ?G, QOD
     Route: 058
     Dates: start: 20170301

REACTIONS (6)
  - Disturbance in attention [Recovered/Resolved]
  - Multiple sclerosis relapse [Recovered/Resolved]
  - Rash erythematous [Recovered/Resolved]
  - Cognitive disorder [Recovered/Resolved]
  - Optic neuritis [Recovered/Resolved]
  - Drug hypersensitivity [Unknown]

NARRATIVE: CASE EVENT DATE: 20190114
